FAERS Safety Report 8364750-7 (Version None)
Quarter: 2012Q2

REPORT INFORMATION
  Report Type: 
  Country: None (occurrence: None)
  Receive Date: 20120516
  Receipt Date: 20120203
  Transmission Date: 20120825
  Serious: Yes (Death, Hospitalization, Other)
  Sender: FDA-Public Use
  Company Number: US-ROCHE-802539

PATIENT
  Sex: Female
  Weight: 59.8 kg

DRUGS (14)
  1. HERCEPTIN [Suspect]
     Indication: BREAST CANCER METASTATIC
  2. LORAZEPAM [Concomitant]
     Route: 048
  3. VICODIN [Concomitant]
     Route: 048
  4. CARBOPLATIN [Suspect]
     Indication: BREAST CANCER METASTATIC
  5. NEULASTA [Concomitant]
     Dosage: 6MG/0.6 ML
     Route: 058
  6. AVASTIN [Suspect]
     Indication: BREAST CANCER METASTATIC
     Dates: start: 20110614, end: 20110916
  7. COMPAZINE [Concomitant]
     Indication: NAUSEA
     Route: 048
  8. DEXAMETHASONE [Concomitant]
     Route: 048
  9. ATIVAN [Concomitant]
     Indication: INSOMNIA
  10. LEVOTHROID [Concomitant]
     Route: 048
  11. LEVOTHYROXINE SODIUM [Concomitant]
     Route: 048
  12. ATIVAN [Concomitant]
     Indication: NAUSEA
     Route: 048
  13. ATIVAN [Concomitant]
     Indication: ANXIETY
  14. DECADRON [Concomitant]
     Route: 048

REACTIONS (1)
  - PNEUMOTHORAX [None]
